FAERS Safety Report 7451615-8 (Version None)
Quarter: 2011Q2

REPORT INFORMATION
  Report Type: 
  Country: None (occurrence: None)
  Receive Date: 20110502
  Receipt Date: 20100322
  Transmission Date: 20111010
  Serious: No
  Sender: FDA-Public Use
  Company Number: US-ASTRAZENECA-2010SE12646

PATIENT
  Age: 41 Year
  Sex: Male
  Weight: 86.2 kg

DRUGS (8)
  1. METOPROLOL SUCCINATE [Concomitant]
     Indication: BLOOD PRESSURE
  2. LIPITOR [Concomitant]
  3. LISINOPRIL [Concomitant]
     Indication: BLOOD PRESSURE
  4. VITAMIN C [Concomitant]
  5. NEXIUM [Suspect]
     Indication: GASTROOESOPHAGEAL REFLUX DISEASE
     Route: 048
     Dates: start: 20050101
  6. HYDROCHLOROTHIAZIDE [Concomitant]
     Indication: BLOOD PRESSURE
  7. PRILOSEC [Suspect]
     Indication: GASTROOESOPHAGEAL REFLUX DISEASE
     Dosage: DAILY
     Route: 048
     Dates: start: 19960101, end: 20050101
  8. ASPIRIN [Concomitant]

REACTIONS (3)
  - CHEST PAIN [None]
  - BLOOD GLUCOSE INCREASED [None]
  - ERUCTATION [None]
